FAERS Safety Report 5454657-7 (Version None)
Quarter: 2007Q3

REPORT INFORMATION
  Report Type: 
  Country: None (occurrence: None)
  Receive Date: 20070917
  Receipt Date: 20061010
  Transmission Date: 20080115
  Serious: No
  Sender: FDA-Public Use
  Company Number: US-ASTRAZENECA-2006UW16083

PATIENT
  Age: 27 Year
  Sex: Female
  Weight: 51.7 kg

DRUGS (5)
  1. SEROQUEL [Suspect]
     Indication: SLEEP DISORDER
     Route: 048
     Dates: start: 20060719, end: 20060724
  2. SEROQUEL [Suspect]
     Route: 048
     Dates: start: 20060725
  3. CYMBALTA [Concomitant]
  4. XANAX [Concomitant]
  5. VICODIN [Concomitant]

REACTIONS (2)
  - CONJUNCTIVITIS INFECTIVE [None]
  - MENSTRUAL DISORDER [None]
